FAERS Safety Report 15275991 (Version 1)
Quarter: 2018Q3

REPORT INFORMATION
  Report Type: Spontaneous
  Country: US (occurrence: US)
  Receive Date: 20180728
  Receipt Date: 20180728
  Transmission Date: 20181010
  Serious: Yes (Other)
  Sender: FDA-Public Use
  Company Number: None

PATIENT
  Age: 28 Year
  Sex: Female
  Weight: 51.75 kg

DRUGS (1)
  1. DULOXETINE HCL DR 30MG CAP [Suspect]
     Active Substance: DULOXETINE HYDROCHLORIDE
     Indication: DEPRESSION
     Dosage: ?          QUANTITY:1 CAPSULE(S);?
     Route: 048
     Dates: end: 20180706

REACTIONS (5)
  - Paraesthesia [None]
  - Anxiety [None]
  - Depression [None]
  - Mood altered [None]
  - Withdrawal syndrome [None]

NARRATIVE: CASE EVENT DATE: 20180706
